FAERS Safety Report 6346412-0 (Version None)
Quarter: 2009Q3

REPORT INFORMATION
  Report Type: 
  Country: None (occurrence: None)
  Receive Date: 20090909
  Receipt Date: 20090831
  Transmission Date: 20100115
  Serious: Yes (Hospitalization)
  Sender: FDA-Public Use
  Company Number: US-ASTRAZENECA-2009SE10851

PATIENT
  Age: 1023 Month
  Sex: Female

DRUGS (4)
  1. CRESTOR [Suspect]
     Indication: BLOOD CHOLESTEROL INCREASED
     Route: 048
     Dates: start: 20070701, end: 20070801
  2. CRESTOR [Suspect]
     Route: 048
     Dates: start: 20090801
  3. LASIX [Concomitant]
     Indication: JOINT SWELLING
  4. ANTIHYPERTENSIVE [Concomitant]
     Indication: HYPERTENSION

REACTIONS (3)
  - GALLBLADDER OPERATION [None]
  - STAPHYLOCOCCAL INFECTION [None]
  - VOMITING [None]
